FAERS Safety Report 6379910-4 (Version None)
Quarter: 2009Q3

REPORT INFORMATION
  Report Type: 
  Country: None (occurrence: None)
  Receive Date: 20090928
  Receipt Date: 20090921
  Transmission Date: 20100115
  Serious: Yes (Death, Other)
  Sender: FDA-Public Use
  Company Number: PHEH2009US11679

PATIENT
  Age: 66 Year
  Sex: Female

DRUGS (12)
  1. GLEEVEC [Suspect]
     Indication: SARCOMA
     Dosage: 400 MG, QD
     Route: 048
     Dates: start: 20090810, end: 20090817
  2. STEROIDS NOS [Suspect]
  3. DEXAMETHASONE 4MG TAB [Suspect]
  4. KEPPRA [Concomitant]
  5. OXYCODONE HCL [Concomitant]
  6. PROTONIX [Concomitant]
  7. ZOFRAN [Concomitant]
  8. MIRALAX [Concomitant]
  9. DILTIAZEM [Concomitant]
  10. LORAZEPAM [Concomitant]
  11. REGLAN [Concomitant]
  12. FERROUS SULFATE TAB [Concomitant]

REACTIONS (8)
  - BRAIN NEOPLASM [None]
  - EATING DISORDER [None]
  - GASTROINTESTINAL TUBE INSERTION [None]
  - GENERAL PHYSICAL HEALTH DETERIORATION [None]
  - ORAL CANDIDIASIS [None]
  - OROPHARYNGEAL PAIN [None]
  - PARALYSIS [None]
  - SEPSIS [None]
